FAERS Safety Report 6639443-4 (Version None)
Quarter: 2010Q1

REPORT INFORMATION
  Report Type: 
  Country: None (occurrence: None)
  Receive Date: 20100315
  Receipt Date: 20100308
  Transmission Date: 20100710
  Serious: Yes (Death)
  Sender: FDA-Public Use
  Company Number: 2010US000759

PATIENT
  Age: 65 Year
  Sex: Male

DRUGS (4)
  1. PROGRAF [Suspect]
     Indication: RENAL TRANSPLANT
     Dosage: 1.5 MG, BID, UNKNOWN
     Dates: start: 20061115, end: 20100303
  2. CELLCEPT (MYCOPHOLATE MOFETIL) [Concomitant]
  3. LIPITOR [Concomitant]
  4. M,ETOPROLOL (METOPROLOL) [Concomitant]

REACTIONS (2)
  - LUNG NEOPLASM MALIGNANT [None]
  - REFUSAL OF TREATMENT BY PATIENT [None]
